FAERS Safety Report 12515292 (Version 2)
Quarter: 2016Q3

REPORT INFORMATION
  Report Type: Spontaneous
  Country: IT (occurrence: IT)
  Receive Date: 20160630
  Receipt Date: 20160728
  Transmission Date: 20161109
  Serious: Yes (Death)
  Sender: FDA-Public Use
  Company Number: IT-TEVA-672600ACC

PATIENT
  Age: 82 Year
  Sex: Female

DRUGS (5)
  1. VANCOMYCIN [Interacting]
     Active Substance: VANCOMYCIN
     Indication: SKIN INFECTION
     Dosage: 1 G AS LOADING DOSE, THEN 500 MG
     Route: 042
  2. FENTANYL. [Suspect]
     Active Substance: FENTANYL
     Indication: ISCHAEMIC LIMB PAIN
     Dosage: 12 MCG / H
     Route: 062
     Dates: start: 20150521
  3. FENTANYL. [Interacting]
     Active Substance: FENTANYL
     Dosage: INCREASED PATCH DOSAGE TO 25 MCG / H
  4. LEVOFLOXACIN. [Interacting]
     Active Substance: LEVOFLOXACIN
     Indication: INFECTION
     Dosage: 500 MILLIGRAM DAILY;
  5. RIFAMPICIN [Interacting]
     Active Substance: RIFAMPIN
     Indication: PRODUCT USED FOR UNKNOWN INDICATION
     Dosage: 300 MILLIGRAM DAILY; 300 MG / DAY

REACTIONS (3)
  - Generalised non-convulsive epilepsy [Fatal]
  - Prescribed overdose [Fatal]
  - Drug interaction [Fatal]
